FAERS Safety Report 18242005 (Version 1)
Quarter: 2020Q3

REPORT INFORMATION
  Report Type: Spontaneous
  Country: CA (occurrence: CA)
  Receive Date: 20200908
  Receipt Date: 20200908
  Transmission Date: 20201103
  Serious: Yes (Hospitalization)
  Sender: FDA-Public Use
  Company Number: None

PATIENT
  Age: 75 Year
  Sex: Female

DRUGS (5)
  1. CLOPIXOL [Suspect]
     Active Substance: ZUCLOPENTHIXOL
     Indication: PRODUCT USED FOR UNKNOWN INDICATION
     Dosage: ?          QUANTITY:1 INJECTION(S);OTHER FREQUENCY:EVERY TWO WEEKS;?
     Route: 048
  2. ASPIRIN 81 [Concomitant]
     Active Substance: ASPIRIN
  3. ARIPIPRAZOLE. [Suspect]
     Active Substance: ARIPIPRAZOLE
     Indication: PRODUCT USED FOR UNKNOWN INDICATION
     Dosage: ?          QUANTITY:1 TABLET(S);?
     Route: 048
  4. COVERSYL [Concomitant]
     Active Substance: PERINDOPRIL
  5. MELATONIN [Concomitant]
     Active Substance: MELATONIN

REACTIONS (14)
  - Vomiting [None]
  - Chest pain [None]
  - Pruritus [None]
  - Abdominal distension [None]
  - Hyperhidrosis [None]
  - Weight increased [None]
  - Constipation [None]
  - Urine output increased [None]
  - Muscle twitching [None]
  - Nausea [None]
  - Tardive dyskinesia [None]
  - Asthenia [None]
  - Headache [None]
  - Dysphagia [None]
